FAERS Safety Report 9377757 (Version 1)
Quarter: 2013Q2

REPORT INFORMATION
  Report Type: Spontaneous
  Country: US (occurrence: None)
  Receive Date: 20130625
  Receipt Date: 20130625
  Transmission Date: 20140414
  Serious: Yes (Other)
  Sender: FDA-Public Use
  Company Number: 2013GMK005942

PATIENT
  Age: 17 Year
  Sex: Female

DRUGS (1)
  1. HEATHER [Suspect]
     Indication: CONTRACEPTION
     Route: 048

REACTIONS (7)
  - Malaise [None]
  - Malaise [None]
  - Vomiting [None]
  - Expired drug administered [None]
  - Pregnancy on oral contraceptive [None]
  - Maternal exposure during pregnancy [None]
  - Treatment noncompliance [None]
